FAERS Safety Report 10573483 (Version 2)
Quarter: 2015Q2

REPORT INFORMATION
  Report Type: Report from Study
  Country: TR (occurrence: TR)
  Receive Date: 20141110
  Receipt Date: 20150529
  Transmission Date: 20150821
  Serious: Yes (Hospitalization)
  Sender: FDA-Public Use
  Company Number: TR-NOVOPROD-427869

PATIENT
  Sex: Male
  Weight: 3.7 kg

DRUGS (2)
  1. NOVORAPID [Suspect]
     Active Substance: INSULIN ASPART
     Indication: GESTATIONAL DIABETES
     Dosage: 2 U, QD
     Route: 064
     Dates: start: 20140930, end: 20141014
  2. GYNOFERON                          /02994301/ [Concomitant]
     Indication: MINERAL SUPPLEMENTATION
     Dosage: 1X1
     Route: 064
     Dates: start: 20141010

REACTIONS (4)
  - Immature respiratory system [Recovered/Resolved]
  - Premature baby [Unknown]
  - Jaundice neonatal [Recovered/Resolved]
  - Foetal exposure during pregnancy [Recovered/Resolved]

NARRATIVE: CASE EVENT DATE: 20140930
